FAERS Safety Report 9342343 (Version 1)
Quarter: 2013Q2

REPORT INFORMATION
  Report Type: Report from Study
  Country: CA (occurrence: CA)
  Receive Date: 20130611
  Receipt Date: 20130611
  Transmission Date: 20140414
  Serious: Yes (Other)
  Sender: FDA-Public Use
  Company Number: CA-JNJFOC-20130603650

PATIENT
  Age: 35 Year
  Sex: Female
  Weight: 113.5 kg

DRUGS (14)
  1. REMICADE [Suspect]
     Indication: RHEUMATOID ARTHRITIS
     Route: 042
     Dates: start: 20080903
  2. METHOTREXATE [Concomitant]
     Route: 065
  3. CELEBREX [Concomitant]
     Route: 065
  4. TYLENOL [Concomitant]
     Route: 065
  5. VITAMIN B 12 [Concomitant]
     Route: 065
  6. PALAFER [Concomitant]
     Route: 065
  7. PLAQUENIL [Concomitant]
     Route: 065
  8. FOLIC ACID [Concomitant]
     Route: 065
  9. EMTEC 30 [Concomitant]
     Route: 065
  10. OXYCODONE [Concomitant]
     Route: 065
  11. ZOPICLONE [Concomitant]
     Route: 065
  12. CALCIUM CARBONATE [Concomitant]
     Route: 065
  13. ALENDRONATE [Concomitant]
     Route: 065
  14. ORTHO NOVUM 1/35 [Concomitant]
     Route: 065

REACTIONS (1)
  - Rectal haemorrhage [Recovered/Resolved]
